FAERS Safety Report 20706086 (Version 1)
Quarter: 2022Q2

REPORT INFORMATION
  Report Type: Spontaneous
  Country: US (occurrence: US)
  Receive Date: 20220413
  Receipt Date: 20220413
  Transmission Date: 20220721
  Serious: No
  Sender: FDA-Public Use
  Company Number: US-PFIZER INC-202101006970

PATIENT
  Age: 60 Year
  Sex: Female
  Weight: 54.43 kg

DRUGS (1)
  1. CHANTIX [Suspect]
     Active Substance: VARENICLINE TARTRATE
     Indication: Smoking cessation therapy
     Dosage: 1 MG, DAILY
     Route: 048
     Dates: start: 2021

REACTIONS (3)
  - Weight decreased [Unknown]
  - Intentional product misuse [Unknown]
  - Off label use [Unknown]
